FAERS Safety Report 18391397 (Version 1)
Quarter: 2020Q4

REPORT INFORMATION
  Report Type: Spontaneous
  Country: FR (occurrence: FR)
  Receive Date: 20201015
  Receipt Date: 20201015
  Transmission Date: 20210114
  Serious: Yes (Other)
  Sender: FDA-Public Use
  Company Number: ALC2020FR007914

PATIENT

DRUGS (1)
  1. ATROPINE ALCON 0,3% COLLYRE [Suspect]
     Active Substance: ATROPINE SULFATE
     Indication: OPHTHALMOLOGICAL EXAMINATION
     Dosage: (DROP (1/12 MILLILITRE))
     Route: 047
     Dates: start: 20200822

REACTIONS (2)
  - Erythema [Recovered/Resolved]
  - Asthenia [Recovered/Resolved]

NARRATIVE: CASE EVENT DATE: 20200822
